FAERS Safety Report 24321615 (Version 2)
Quarter: 2025Q1

REPORT INFORMATION
  Report Type: Spontaneous
  Country: US (occurrence: US)
  Receive Date: 20240916
  Receipt Date: 20250117
  Transmission Date: 20250408
  Serious: Yes (Other)
  Sender: ENDO
  Company Number: US-ENDO USA, INC.-2024-002234

PATIENT
  Sex: Male

DRUGS (3)
  1. ACETAMINOPHEN\OXYCODONE HYDROCHLORIDE [Suspect]
     Active Substance: ACETAMINOPHEN\OXYCODONE HYDROCHLORIDE
     Indication: Ill-defined disorder
     Route: 048
  2. PERCOCET [Suspect]
     Active Substance: ACETAMINOPHEN\OXYCODONE HYDROCHLORIDE
     Indication: Ill-defined disorder
     Route: 048
  3. HYDROCODONE POLISTIREX AND CHLORPHENIRAMINE POLISTIREX [Suspect]
     Active Substance: CHLORPHENIRAMINE MALEATE\HYDROCODONE BITARTRATE
     Indication: Ill-defined disorder
     Route: 048

REACTIONS (8)
  - Suicide attempt [Unknown]
  - Depression [Not Recovered/Not Resolved]
  - Suicidal ideation [Unknown]
  - Withdrawal syndrome [Unknown]
  - Dependence [Unknown]
  - Overdose [Unknown]
  - Pain [Unknown]
  - Product prescribing issue [Unknown]
